FAERS Safety Report 25620792 (Version 2)
Quarter: 2025Q3

REPORT INFORMATION
  Report Type: Spontaneous
  Country: US (occurrence: US)
  Receive Date: 20250730
  Receipt Date: 20250930
  Transmission Date: 20251021
  Serious: Yes (Hospitalization, Other)
  Sender: ALEXION PHARMACEUTICALS
  Company Number: US-AstraZeneca-CH-00917166A

PATIENT
  Sex: Male

DRUGS (2)
  1. LOKELMA [Suspect]
     Active Substance: SODIUM ZIRCONIUM CYCLOSILICATE
     Route: 065
  2. ALLOPURINOL [Concomitant]
     Active Substance: ALLOPURINOL
     Route: 065

REACTIONS (8)
  - Chronic kidney disease [Unknown]
  - Hyperkalaemia [Unknown]
  - Prostate cancer [Unknown]
  - Intentional product use issue [Unknown]
  - Fall [Unknown]
  - Gout [Unknown]
  - Blood uric acid increased [Unknown]
  - Blood pressure abnormal [Unknown]
